FAERS Safety Report 9346474 (Version 1)
Quarter: 2013Q2

REPORT INFORMATION
  Report Type: Report from Study
  Country: BE (occurrence: BE)
  Receive Date: 20130613
  Receipt Date: 20130613
  Transmission Date: 20140414
  Serious: Yes (Hospitalization, Disabling)
  Sender: FDA-Public Use
  Company Number: BE-JNJFOC-20130605440

PATIENT
  Age: 36 Year
  Sex: Female

DRUGS (2)
  1. REMICADE [Suspect]
     Indication: RHEUMATOID ARTHRITIS
     Route: 042
     Dates: start: 200106, end: 200106
  2. REMICADE [Suspect]
     Indication: RHEUMATOID ARTHRITIS
     Route: 042
     Dates: start: 200203, end: 200203

REACTIONS (5)
  - Hemiplegia [Unknown]
  - Ophthalmoplegia [Unknown]
  - Vasculitis [Unknown]
  - Cerebrovascular accident [Unknown]
  - Blindness [Recovered/Resolved]
